FAERS Safety Report 4604442-0 (Version None)
Quarter: 2005Q2

REPORT INFORMATION
  Report Type: 
  Country: None (occurrence: None)
  Receive Date: 20050215
  Receipt Date: 20041018
  Transmission Date: 20051028
  Serious: Yes (Other)
  Sender: FDA-Public Use
  Company Number: 364131

PATIENT
  Age: 52 Year
  Sex: Female
  Weight: 78 kg

DRUGS (2)
  1. PEGASYS [Suspect]
     Indication: HEPATITIS C
     Dosage: 180 MG 1 PER WEEK INTRAMUSCULAR
     Route: 030
     Dates: start: 20040101, end: 20040610
  2. COPEGUS [Suspect]
     Dosage: 400 MG 2 PER DAY ORAL
     Route: 048
     Dates: start: 20040101, end: 20040616

REACTIONS (3)
  - ANAEMIA [None]
  - LEUKOPENIA [None]
  - NAUSEA [None]
